FAERS Safety Report 4713307-5 (Version None)
Quarter: 2005Q3

REPORT INFORMATION
  Report Type: 
  Country: None (occurrence: None)
  Receive Date: 20050713
  Receipt Date: 20050707
  Transmission Date: 20060218
  Serious: Yes (Death, Hospitalization)
  Sender: FDA-Public Use
  Company Number: JPKYO-S-20050015

PATIENT
  Age: 72 Year
  Sex: Male

DRUGS (5)
  1. NAVELBINE [Suspect]
     Indication: NON-SMALL CELL LUNG CANCER
     Dosage: 35MG PER DAY
     Route: 042
     Dates: start: 20050106, end: 20050527
  2. GASTER [Concomitant]
     Route: 065
     Dates: start: 20050506, end: 20050602
  3. PREDNISOLONE [Concomitant]
     Route: 065
     Dates: start: 20050506, end: 20050602
  4. CODEINE PHOSPHATE [Concomitant]
     Route: 065
     Dates: start: 20050506, end: 20050602
  5. LOXOPROFEN SODIUM [Concomitant]
     Route: 065
     Dates: start: 20050506, end: 20050602

REACTIONS (8)
  - ACUTE MYOCARDIAL INFARCTION [None]
  - ANURIA [None]
  - BLOOD CREATINE PHOSPHOKINASE ABNORMAL [None]
  - CARDIAC PSEUDOANEURYSM [None]
  - CHEST PAIN [None]
  - CORONARY ARTERY OCCLUSION [None]
  - HAEMODIALYSIS [None]
  - VENTRICULAR DYSFUNCTION [None]
